FAERS Safety Report 4667263-9 (Version None)
Quarter: 2005Q2

REPORT INFORMATION
  Report Type: 
  Country: None (occurrence: None)
  Receive Date: 20050421
  Receipt Date: 20050207
  Transmission Date: 20051028
  Serious: Yes (Other)
  Sender: FDA-Public Use
  Company Number: 2005028720

PATIENT
  Age: 52 Year
  Sex: Male
  Weight: 65.318 kg

DRUGS (5)
  1. SOMAVERT [Suspect]
     Indication: ACROMEGALY
     Dosage: 20 MG (20 MG, DAILY), SUBCUTANEOUS
     Route: 058
     Dates: start: 20030801
  2. LISINOPRIL [Concomitant]
  3. GLUCOSAMINE (GLUCOSAMINE) [Concomitant]
  4. DICYCLOVERINE (DICYCLOVERINE) [Concomitant]
  5. VITAMINS (VITAMINS) [Concomitant]

REACTIONS (2)
  - APPLICATION SITE BRUISING [None]
  - SKIN REACTION [None]
